FAERS Safety Report 7226147-2 (Version None)
Quarter: 2011Q1

REPORT INFORMATION
  Report Type: 
  Country: None (occurrence: None)
  Receive Date: 20110114
  Receipt Date: 20110106
  Transmission Date: 20110831
  Serious: Yes (Other)
  Sender: FDA-Public Use
  Company Number: US-BIOGENIDEC-2010BI041874

PATIENT
  Age: 44 Year
  Sex: Male

DRUGS (2)
  1. AVONEX [Suspect]
     Route: 030
     Dates: start: 20040501
  2. AVONEX [Suspect]
     Indication: MULTIPLE SCLEROSIS
     Route: 030

REACTIONS (1)
  - BASAL CELL CARCINOMA [None]
